FAERS Safety Report 9765327 (Version 1)
Quarter: 2013Q4

REPORT INFORMATION
  Report Type: Spontaneous
  Country: US (occurrence: US)
  Receive Date: 20131217
  Receipt Date: 20131217
  Transmission Date: 20140711
  Serious: No
  Sender: FDA-Public Use
  Company Number: US-GLAXOSMITHKLINE-A1005725A

PATIENT
  Age: 85 Year
  Sex: Female

DRUGS (18)
  1. VOTRIENT [Suspect]
     Indication: SARCOMA METASTATIC
     Dosage: 2TAB PER DAY
     Route: 048
     Dates: start: 20121001, end: 20121210
  2. ADVAIR [Concomitant]
  3. SINGULAIR [Concomitant]
  4. INHALER [Concomitant]
  5. NEBULIZER [Concomitant]
  6. DIOVAN HCTZ [Concomitant]
  7. ZOCOR [Concomitant]
  8. ONE A DAY VITAMINS [Concomitant]
  9. ALEVE [Concomitant]
  10. IBUPROFEN [Concomitant]
  11. TYLENOL [Concomitant]
  12. FISH OIL [Concomitant]
  13. VITAMIN D3 [Concomitant]
  14. ACIDOPHILUS [Concomitant]
  15. STOOL SOFTENER [Concomitant]
  16. GAS-X [Concomitant]
  17. ZOFRAN [Concomitant]
  18. BOOST DRINK [Concomitant]

REACTIONS (9)
  - Nausea [Recovering/Resolving]
  - Fatigue [Unknown]
  - Decreased appetite [Unknown]
  - Diarrhoea [Unknown]
  - Confusional state [Unknown]
  - Asthenia [Unknown]
  - Impaired driving ability [Unknown]
  - Mental status changes [Unknown]
  - Exercise lack of [Unknown]
